FAERS Safety Report 9806542 (Version 2)
Quarter: 2014Q1

REPORT INFORMATION
  Report Type: Spontaneous
  Country: US (occurrence: US)
  Receive Date: 20140109
  Receipt Date: 20140109
  Transmission Date: 20141002
  Serious: Yes (Hospitalization, Other)
  Sender: FDA-Public Use
  Company Number: US-BAXTER-2013BAX053377

PATIENT
  Age: 69 Year
  Sex: Male

DRUGS (12)
  1. DIANEAL LOW CALCIUM [Suspect]
     Indication: PERITONEAL DIALYSIS
     Route: 033
  2. DIANEAL LOW CALCIUM [Suspect]
     Route: 033
     Dates: end: 20131229
  3. DIANEAL LOW CALCIUM [Suspect]
     Indication: PERITONEAL DIALYSIS
     Route: 033
  4. DIANEAL LOW CALCIUM [Suspect]
     Route: 033
     Dates: end: 20131229
  5. DIANEAL LOW CALCIUM [Suspect]
     Indication: PERITONEAL DIALYSIS
     Route: 033
  6. DIANEAL LOW CALCIUM [Suspect]
     Route: 033
     Dates: end: 20131229
  7. DIANEAL LOW CALCIUM (ULTRABAG) [Suspect]
     Indication: PERITONEAL DIALYSIS
     Route: 033
     Dates: start: 20131216
  8. DIANEAL LOW CALCIUM (ULTRABAG) [Suspect]
     Route: 033
     Dates: end: 20131231
  9. DIANEAL LOW CALCIUM (ULTRABAG) [Suspect]
     Indication: PERITONEAL DIALYSIS
     Route: 033
     Dates: start: 20131216
  10. DIANEAL LOW CALCIUM (ULTRABAG) [Suspect]
     Route: 033
     Dates: end: 20131231
  11. DIANEAL LOW CALCIUM (ULTRABAG) [Suspect]
     Indication: PERITONEAL DIALYSIS
     Route: 033
     Dates: start: 20131216
  12. DIANEAL LOW CALCIUM (ULTRABAG) [Suspect]
     Route: 033
     Dates: end: 20131231

REACTIONS (5)
  - Pleuritic pain [Recovering/Resolving]
  - Musculoskeletal pain [Recovering/Resolving]
  - Peritoneal adhesions [Unknown]
  - Abdominal pain upper [Recovering/Resolving]
  - Procedural pain [Recovered/Resolved]
